FAERS Safety Report 6607088-8 (Version None)
Quarter: 2010Q1

REPORT INFORMATION
  Report Type: 
  Country: None (occurrence: None)
  Receive Date: 20100219
  Receipt Date: 20100205
  Transmission Date: 20100710
  Serious: Yes (Other)
  Sender: FDA-Public Use
  Company Number: CTI_01120_2010

PATIENT
  Age: 77 Year
  Sex: Female

DRUGS (2)
  1. FACTIVE [Suspect]
     Indication: PULMONARY CONGESTION
     Dosage: DF
     Dates: start: 20100129
  2. DIURETICS [Concomitant]

REACTIONS (6)
  - BLOOD MAGNESIUM DECREASED [None]
  - DECREASED APPETITE [None]
  - HALLUCINATION [None]
  - POSTURE ABNORMAL [None]
  - PULMONARY CONGESTION [None]
  - SOMNOLENCE [None]
